FAERS Safety Report 9031612 (Version 1)
Quarter: 2013Q1

REPORT INFORMATION
  Report Type: Report from Study
  Country: US (occurrence: US)
  Receive Date: 20130124
  Receipt Date: 20130124
  Transmission Date: 20140127
  Serious: Yes (Hospitalization)
  Sender: FDA-Public Use
  Company Number: US-ROCHE-1183300

PATIENT
  Age: 5 Year
  Sex: Female

DRUGS (2)
  1. ACTEMRA [Suspect]
     Indication: JUVENILE IDIOPATHIC ARTHRITIS
     Route: 042
     Dates: start: 201107
  2. ACTEMRA [Suspect]
     Route: 042
     Dates: start: 20121218

REACTIONS (4)
  - Abdominal pain [Unknown]
  - Abdominal abscess [Unknown]
  - Small intestinal perforation [Unknown]
  - Abdominal pain [Unknown]
